FAERS Safety Report 10539703 (Version 3)
Quarter: 2014Q4

REPORT INFORMATION
  Report Type: Spontaneous
  Country: US (occurrence: US)
  Receive Date: 20141024
  Receipt Date: 20141208
  Transmission Date: 20150529
  Serious: Yes (Death)
  Sender: FDA-Public Use
  Company Number: US-ROCHE-1478870

PATIENT
  Sex: Male

DRUGS (1)
  1. LUCENTIS [Suspect]
     Active Substance: RANIBIZUMAB
     Indication: EYE HAEMORRHAGE
     Dosage: APPROX EVERY OTHER MONTH
     Route: 065
     Dates: start: 20131219, end: 20140528

REACTIONS (2)
  - Cardiovascular disorder [Fatal]
  - Circulatory collapse [Fatal]
